FAERS Safety Report 8620848-7 (Version None)
Quarter: 2012Q3

REPORT INFORMATION
  Report Type: 
  Country: None (occurrence: None)
  Receive Date: 20120824
  Receipt Date: 20120822
  Transmission Date: 20120928
  Serious: Yes (Hospitalization)
  Sender: FDA-Public Use
  Company Number: US-ROCHE-GNE304497

PATIENT
  Sex: Female
  Weight: 84.444 kg

DRUGS (21)
  1. VENTOLIN [Concomitant]
     Indication: ASTHMA
     Dosage: UNK
  2. EXTRA STRENGTH TYLENOL HEADACHE PLUS [Concomitant]
     Indication: HEADACHE
     Dosage: UNK
  3. HYDROXYZINE [Concomitant]
     Indication: INSOMNIA
  4. XOPENEX [Concomitant]
     Indication: ASTHMA
     Dosage: UNK
  5. ALLERGY SHOTS [Concomitant]
     Indication: HYPERSENSITIVITY
     Dosage: UNK
  6. ZOFRAN [Concomitant]
     Indication: NAUSEA
     Dosage: UNK
  7. ZOLOFT [Concomitant]
     Indication: ANXIETY
     Dosage: UNK
  8. ZOFRAN [Concomitant]
     Indication: VOMITING
  9. HYDROXYZINE [Concomitant]
     Indication: ANXIETY
     Dosage: UNK
  10. CLARITIN [Concomitant]
     Indication: HYPERSENSITIVITY
     Dosage: UNK
  11. PEPCID [Concomitant]
     Indication: DYSPEPSIA
     Dosage: UNK
  12. ZITHROMAX [Concomitant]
     Indication: BRONCHITIS
  13. PREDNISONE TAB [Concomitant]
     Indication: BRONCHITIS
  14. AUGMENTIN '500' [Concomitant]
     Indication: SINUSITIS
  15. ALDOMET [Concomitant]
     Indication: HYPERTENSION
     Dosage: UNK
  16. OMALIZUMAB [Suspect]
     Indication: ASTHMA
     Dosage: 375 MG, Q2W
     Route: 058
     Dates: start: 20060324
  17. VITAMIN AND MINERAL PRENATAL SUPPLEMENT W/ FOLIC ACID CAP [Concomitant]
     Indication: PREGNANCY
     Dosage: UNK
  18. ARMODAFINIL [Concomitant]
     Indication: FUNGAL INFECTION
  19. PREDNISONE TAB [Concomitant]
     Indication: ASTHMA
     Dosage: UNK
  20. AUGMENTIN '500' [Concomitant]
     Indication: OTITIS MEDIA
  21. QVAR 40 [Concomitant]
     Indication: ASTHMA
     Dosage: UNK

REACTIONS (2)
  - MATERNAL EXPOSURE DURING PREGNANCY [None]
  - POLYHYDRAMNIOS [None]
